FAERS Safety Report 6191874-5 (Version None)
Quarter: 2009Q2

REPORT INFORMATION
  Report Type: 
  Country: None (occurrence: None)
  Receive Date: 20090515
  Receipt Date: 20090508
  Transmission Date: 20091009
  Serious: Yes (Other)
  Sender: FDA-Public Use
  Company Number: ES-GILEAD-E2B_00000337

PATIENT
  Age: 39 Year
  Sex: Female

DRUGS (3)
  1. TRUVADA [Suspect]
     Indication: HIV INFECTION
     Route: 065
     Dates: start: 20030101
  2. KALETRA [Concomitant]
     Indication: HIV INFECTION
     Route: 065
     Dates: start: 20030101
  3. HEMICRANEAL [Concomitant]
     Indication: HEADACHE
     Route: 048
     Dates: start: 20090322, end: 20090322

REACTIONS (2)
  - ARTERIAL SPASM [None]
  - RHABDOMYOLYSIS [None]
